FAERS Safety Report 7674478-4 (Version None)
Quarter: 2011Q3

REPORT INFORMATION
  Report Type: 
  Country: None (occurrence: None)
  Receive Date: 20110810
  Receipt Date: 20110729
  Transmission Date: 20111222
  Serious: Yes (Death, Hospitalization)
  Sender: FDA-Public Use
  Company Number: PH-BAXTER-2011BH018914

PATIENT
  Age: 10 Year
  Sex: Female

DRUGS (2)
  1. DIANEAL [Suspect]
     Indication: PERITONEAL DIALYSIS
     Route: 033
     Dates: start: 20100929
  2. DIANEAL [Suspect]
     Route: 033
     Dates: start: 20100929

REACTIONS (7)
  - CARDIO-RESPIRATORY ARREST [None]
  - INFECTIOUS PERITONITIS [None]
  - PERITONEAL DIALYSIS COMPLICATION [None]
  - INFUSION SITE EXTRAVASATION [None]
  - DYSPNOEA [None]
  - PYREXIA [None]
  - BLOODY PERITONEAL EFFLUENT [None]
